FAERS Safety Report 9361218 (Version 4)
Quarter: 2013Q3

REPORT INFORMATION
  Report Type: Spontaneous
  Country: US (occurrence: None)
  Receive Date: 20130618
  Receipt Date: 20130807
  Transmission Date: 20140515
  Serious: Yes (Other)
  Sender: FDA-Public Use
  Company Number: AUR-APL-2013-04962

PATIENT
  Sex: Female

DRUGS (3)
  1. GLIBENCLAMIDE [Suspect]
     Indication: DIABETES MELLITUS
     Dosage: 2 DOSAGE FORMS (1 DOSAGE FORMS,2 IN 1 D),UNKNOWN
     Dates: start: 20130412
  2. LISINOPRIL (LISINOPRIL) [Concomitant]
  3. METOPROLOL ER SUCCINATE (METOPROLOL SUCCINATE) [Concomitant]

REACTIONS (4)
  - Hyperhidrosis [None]
  - Blood glucose increased [None]
  - Blood glucose fluctuation [None]
  - Confusional state [None]
